FAERS Safety Report 7063729-5 (Version None)
Quarter: 2010Q4

REPORT INFORMATION
  Report Type: 
  Country: None (occurrence: None)
  Receive Date: 20101026
  Receipt Date: 20101020
  Transmission Date: 20110411
  Serious: Yes (Hospitalization, Other)
  Sender: FDA-Public Use
  Company Number: DE-US-EMD SERONO, INC.-7004034

PATIENT
  Sex: Male
  Weight: 80 kg

DRUGS (4)
  1. REBIF [Suspect]
     Indication: PRODUCT USED FOR UNKNOWN INDICATION
     Route: 058
     Dates: start: 20100329
  2. LYRICA [Concomitant]
     Dates: start: 20100202, end: 20100505
  3. IBUPROFEN [Concomitant]
     Dates: start: 20100202
  4. AMITRIPTILIN [Concomitant]

REACTIONS (3)
  - DIZZINESS [None]
  - PARALYSIS [None]
  - VERTIGO POSITIONAL [None]
